FAERS Safety Report 7031587-0 (Version None)
Quarter: 2010Q4

REPORT INFORMATION
  Report Type: 
  Country: None (occurrence: None)
  Receive Date: 20101005
  Receipt Date: 20101005
  Transmission Date: 20110411
  Serious: Yes (Hospitalization)
  Sender: FDA-Public Use
  Company Number: None

PATIENT
  Sex: Male
  Weight: 94.4 kg

DRUGS (1)
  1. ERBITUX [Suspect]
     Dosage: 1918 MG

REACTIONS (9)
  - ACUTE MYOCARDIAL INFARCTION [None]
  - DRUG ERUPTION [None]
  - MUCOSAL INFLAMMATION [None]
  - ORAL PAIN [None]
  - PAIN [None]
  - RASH ERYTHEMATOUS [None]
  - RASH PAPULAR [None]
  - SKIN EXFOLIATION [None]
  - WHITE BLOOD CELL COUNT INCREASED [None]
